FAERS Safety Report 11080824 (Version 2)
Quarter: 2015Q2

REPORT INFORMATION
  Report Type: Spontaneous
  Country: CH (occurrence: CH)
  Receive Date: 20150501
  Receipt Date: 20150526
  Transmission Date: 20150821
  Serious: Yes (Other)
  Sender: FDA-Public Use
  Company Number: CH-009507513-1504CHE020790

PATIENT
  Age: 23 Year
  Sex: Female
  Weight: 52 kg

DRUGS (3)
  1. IMPLANON [Suspect]
     Active Substance: ETONOGESTREL
     Indication: CONTRACEPTION
     Dosage: UNK
     Route: 058
     Dates: start: 20150225, end: 20150421
  2. NEO-MERCAZOLE [Concomitant]
     Active Substance: CARBIMAZOLE
     Indication: HYPERTHYROIDISM
     Dosage: UNK
     Route: 048
  3. METO ZEROK [Concomitant]
     Active Substance: METOPROLOL SUCCINATE
     Indication: HYPERTENSION
     Dosage: UNK (FORMUATION:RETARD TABLET)
     Route: 048

REACTIONS (9)
  - Impaired healing [Recovering/Resolving]
  - Scab [Recovering/Resolving]
  - Implant site pruritus [Recovered/Resolved]
  - Implant site hypersensitivity [Recovering/Resolving]
  - Blister rupture [Recovered/Resolved]
  - Blister [Recovering/Resolving]
  - Inflammation of wound [Recovering/Resolving]
  - Seroma [Recovering/Resolving]
  - Implant site infection [Recovered/Resolved]

NARRATIVE: CASE EVENT DATE: 20150225
